FAERS Safety Report 16119902 (Version 2)
Quarter: 2019Q2

REPORT INFORMATION
  Report Type: Spontaneous
  Country: US (occurrence: US)
  Receive Date: 20190326
  Receipt Date: 20190517
  Transmission Date: 20190711
  Serious: Yes (Other)
  Sender: FDA-Public Use
  Company Number: US-ASTRAZENECA-2019SE43432

PATIENT
  Sex: Female

DRUGS (39)
  1. BYETTA [Suspect]
     Active Substance: EXENATIDE
     Route: 065
     Dates: start: 20110114, end: 20140305
  2. BYETTA [Suspect]
     Active Substance: EXENATIDE
     Route: 065
     Dates: start: 20111114, end: 20120601
  3. BYETTA [Suspect]
     Active Substance: EXENATIDE
     Dosage: TWO TIMES DAILY
     Route: 065
     Dates: start: 20120308
  4. LEVEMIR [Concomitant]
     Active Substance: INSULIN DETEMIR
  5. CLOTRIMAZOLE. [Concomitant]
     Active Substance: CLOTRIMAZOLE
     Dates: start: 20110325
  6. BYETTA [Suspect]
     Active Substance: EXENATIDE
     Dosage: TWO TIMES DAILY
     Route: 065
     Dates: start: 20120210
  7. JARDIANCE [Concomitant]
     Active Substance: EMPAGLIFLOZIN
  8. CORICIDIN [Concomitant]
     Active Substance: ACETAMINOPHEN\CHLORPHENIRAMINE MALEATE
     Dates: start: 20150302
  9. AZELASTINE. [Concomitant]
     Active Substance: AZELASTINE HYDROCHLORIDE
     Dates: start: 20170509
  10. METFORMIN [Concomitant]
     Active Substance: METFORMIN HYDROCHLORIDE
     Dates: start: 20120216
  11. BYETTA [Suspect]
     Active Substance: EXENATIDE
     Dosage: TWO TIMES DAILY
     Route: 065
     Dates: start: 20121028
  12. LANTUS [Concomitant]
     Active Substance: INSULIN GLARGINE
  13. PREDNISONE. [Concomitant]
     Active Substance: PREDNISONE
     Dates: start: 20150515
  14. ZALEPLON. [Concomitant]
     Active Substance: ZALEPLON
     Dates: start: 20150914
  15. VICTOZA [Suspect]
     Active Substance: LIRAGLUTIDE
     Dosage: 1.2 MG TO 1.8 MG ONCE A DAILY
     Route: 065
     Dates: start: 20120806, end: 201806
  16. LATANOPROST. [Concomitant]
     Active Substance: LATANOPROST
  17. SINGULAIR [Concomitant]
     Active Substance: MONTELUKAST SODIUM
     Dates: start: 20120216
  18. BYETTA [Suspect]
     Active Substance: EXENATIDE
     Dosage: TWO TIMES DAILY
     Route: 065
     Dates: start: 20140305
  19. FUROSEMIDE. [Concomitant]
     Active Substance: FUROSEMIDE
     Dates: start: 20150525
  20. PROMETHAZINE [Concomitant]
     Active Substance: PROMETHAZINE\PROMETHAZINE HYDROCHLORIDE
     Dates: start: 20160225
  21. ALBUTEROL. [Concomitant]
     Active Substance: ALBUTEROL
     Dates: start: 20110325
  22. AZITHROMYCIN ANHYDROUS. [Concomitant]
     Active Substance: AZITHROMYCIN ANHYDROUS
     Dates: start: 20141001
  23. OMEPRAZOLE. [Concomitant]
     Active Substance: OMEPRAZOLE
     Dates: start: 20150509
  24. LISINOPRIL. [Concomitant]
     Active Substance: LISINOPRIL
     Dates: start: 20150604
  25. DOXEPIN [Concomitant]
     Active Substance: DOXEPIN
     Dates: start: 20150604
  26. TERBINAFINE. [Concomitant]
     Active Substance: TERBINAFINE
     Dates: start: 20150827
  27. NAPROXEN. [Concomitant]
     Active Substance: NAPROXEN
     Dates: start: 20161007
  28. HYDROCHLOROTHIAZIDE. [Concomitant]
     Active Substance: HYDROCHLOROTHIAZIDE
     Dates: start: 20111114
  29. BYETTA [Suspect]
     Active Substance: EXENATIDE
     Dosage: TWO TIMES DAILY
     Route: 065
     Dates: start: 20131212
  30. BYETTA [Suspect]
     Active Substance: EXENATIDE
     Dosage: TWO TIMES DAILY
     Route: 065
     Dates: start: 20130718
  31. VENTOLIN [Concomitant]
     Active Substance: ALBUTEROL SULFATE
  32. NAPROXEN. [Concomitant]
     Active Substance: NAPROXEN
     Dates: start: 20151022
  33. BYETTA [Suspect]
     Active Substance: EXENATIDE
     Dosage: TWO TIMES DAILY
     Route: 065
     Dates: start: 20120304
  34. BYETTA [Suspect]
     Active Substance: EXENATIDE
     Dosage: TWO TIMES DAILY
     Route: 065
     Dates: start: 20130722
  35. MONTELUKAST [Concomitant]
     Active Substance: MONTELUKAST SODIUM
  36. LEVOCETIRIZINE [Concomitant]
     Active Substance: LEVOCETIRIZINE
     Dates: start: 20150525
  37. FLUCONAZOLE. [Concomitant]
     Active Substance: FLUCONAZOLE
     Dates: start: 20150604
  38. FLUTICASONE. [Concomitant]
     Active Substance: FLUTICASONE
     Dates: start: 20161007
  39. PATANOL [Concomitant]
     Active Substance: OLOPATADINE HYDROCHLORIDE
     Dates: start: 20110206

REACTIONS (2)
  - Pancreatic carcinoma metastatic [Unknown]
  - Pancreatic carcinoma [Unknown]
